FAERS Safety Report 8450512-9 (Version None)
Quarter: 2012Q2

REPORT INFORMATION
  Report Type: 
  Country: None (occurrence: None)
  Receive Date: 20120620
  Receipt Date: 20120615
  Transmission Date: 20120825
  Serious: No
  Sender: FDA-Public Use
  Company Number: US-PFIZER INC-2012145577

PATIENT
  Sex: Female

DRUGS (2)
  1. MOTRIN [Suspect]
     Dosage: UNK
  2. TETRACYCLINE HYDROCHLORIDE [Suspect]
     Dosage: UNK

REACTIONS (2)
  - RASH [None]
  - DRUG HYPERSENSITIVITY [None]
